FAERS Safety Report 8352142-6 (Version None)
Quarter: 2012Q2

REPORT INFORMATION
  Report Type: 
  Country: None (occurrence: None)
  Receive Date: 20120511
  Receipt Date: 20120502
  Transmission Date: 20120825
  Serious: Yes (Other)
  Sender: FDA-Public Use
  Company Number: CA-JNJFOC-20120503646

PATIENT
  Sex: Male
  Weight: 64 kg

DRUGS (7)
  1. VENLAFAXINE [Concomitant]
     Route: 065
  2. LEFLUNOMIDE [Concomitant]
     Route: 065
  3. METHOTREXATE [Concomitant]
     Route: 065
  4. HYDROXYCHLOROQUINE [Concomitant]
     Route: 065
  5. CRESTOR [Concomitant]
     Route: 065
  6. REMICADE [Suspect]
     Indication: RHEUMATOID ARTHRITIS
     Route: 042
     Dates: start: 20080510
  7. FOLIC ACID [Concomitant]
     Route: 065

REACTIONS (1)
  - SHOULDER OPERATION [None]
